FAERS Safety Report 5142262-1 (Version None)
Quarter: 2006Q4

REPORT INFORMATION
  Report Type: 
  Country: None (occurrence: None)
  Receive Date: 20061102
  Receipt Date: 20060913
  Transmission Date: 20070319
  Serious: Yes (Death, Disabling)
  Sender: FDA-Public Use
  Company Number: JP-MERCK-0609USA02962

PATIENT
  Age: 77 Year
  Sex: Male

DRUGS (38)
  1. SOLU-CORTEF [Concomitant]
     Indication: SHOCK
     Route: 041
     Dates: start: 20060905, end: 20060905
  2. BUMINATE [Concomitant]
     Indication: SHOCK
     Route: 041
     Dates: start: 20060905, end: 20060907
  3. SODIUM BICARBONATE [Concomitant]
     Indication: ACIDOSIS
     Route: 041
     Dates: start: 20060905, end: 20060908
  4. PREDOPA [Concomitant]
     Indication: SHOCK
     Route: 041
     Dates: start: 20060905, end: 20060906
  5. DOBUTREX [Concomitant]
     Indication: SHOCK
     Route: 041
     Dates: start: 20060905, end: 20060907
  6. NOREPINEPHRINE HYDROCHLORIDE [Concomitant]
     Indication: SHOCK
     Route: 041
     Dates: start: 20060905, end: 20060909
  7. BOSMIN [Concomitant]
     Indication: SHOCK
     Route: 041
     Dates: start: 20060906, end: 20060908
  8. ATROPINE SULFATE [Concomitant]
     Indication: ARRHYTHMIA
     Route: 041
     Dates: start: 20060905, end: 20060907
  9. CALCIUM CHLORIDE [Concomitant]
     Indication: ARRHYTHMIA
     Route: 041
     Dates: start: 20060905, end: 20060905
  10. SALINHES [Concomitant]
     Indication: SHOCK
     Route: 041
     Dates: start: 20060905, end: 20060916
  11. POTASSIUM CHLORIDE [Concomitant]
     Indication: ARRHYTHMIA
     Route: 041
     Dates: start: 20060905, end: 20060906
  12. MAGNESIUM SULFATE [Concomitant]
     Indication: ARRHYTHMIA
     Route: 041
     Dates: start: 20060905, end: 20060905
  13. HUMULIN 70/30 [Concomitant]
     Indication: HYPERGLYCAEMIA
     Route: 041
     Dates: start: 20060905, end: 20060917
  14. ELASPOL [Concomitant]
     Indication: INFLAMMATION
     Route: 041
     Dates: start: 20060905, end: 20060910
  15. IMMUNE GLOBULIN INTRAVENOUS (HUMAN) [Concomitant]
     Indication: INFLAMMATION
     Route: 041
     Dates: start: 20060905, end: 20060909
  16. HYDROCORTONE [Concomitant]
     Indication: INFLAMMATION
     Route: 041
     Dates: start: 20060905, end: 20060909
  17. SOLU-MEDROL [Concomitant]
     Indication: SHOCK
     Route: 041
     Dates: start: 20060906, end: 20060906
  18. LEPETAN [Concomitant]
     Indication: SEDATION
     Route: 041
     Dates: start: 20060906, end: 20060906
  19. NEUART [Concomitant]
     Route: 041
     Dates: start: 20060906, end: 20060910
  20. CALCIUM GLUCONATE [Concomitant]
     Indication: HYPERMAGNESAEMIA
     Route: 041
     Dates: start: 20060906, end: 20060907
  21. LASIX [Concomitant]
     Indication: URINE OUTPUT DECREASED
     Route: 041
     Dates: start: 20060905, end: 20060905
  22. PRIMAXIN [Concomitant]
     Route: 042
     Dates: start: 20060908, end: 20060914
  23. [THERAPY UNSPECIFIED] [Concomitant]
     Route: 041
     Dates: start: 20060905, end: 20060905
  24. [THERAPY UNSPECIFIED] [Concomitant]
     Route: 041
     Dates: start: 20060906, end: 20060910
  25. SOLITA T-1 [Concomitant]
     Route: 041
     Dates: start: 20060906, end: 20060907
  26. DEXTROSE [Concomitant]
     Route: 065
     Dates: start: 20060908, end: 20060908
  27. KALIMATE [Concomitant]
     Route: 048
     Dates: start: 20060907, end: 20060908
  28. LANSOPRAZOLE [Concomitant]
     Route: 048
     Dates: start: 20060907, end: 20060918
  29. PEPCID [Suspect]
     Indication: PROPHYLAXIS AGAINST GASTROINTESTINAL ULCER
     Route: 041
     Dates: start: 20060906, end: 20060907
  30. PEPCID [Suspect]
     Route: 041
     Dates: start: 20060908, end: 20060908
  31. PITRESSIN [Suspect]
     Indication: SHOCK
     Route: 041
     Dates: start: 20060905, end: 20060910
  32. PIPERACILLIN AND TAZOBACTAM [Suspect]
     Indication: PNEUMONIA ASPIRATION
     Route: 041
     Dates: start: 20060905, end: 20060907
  33. DORMICUM (MIDAZOLAM) [Suspect]
     Indication: SEDATION
     Route: 041
     Dates: start: 20060905, end: 20060906
  34. MAGNESIUM CITRATE [Suspect]
     Indication: PREMEDICATION
     Route: 048
     Dates: start: 20060905, end: 20060905
  35. PENTAGIN [Concomitant]
     Indication: ANALGESIC EFFECT
     Route: 041
     Dates: start: 20060905, end: 20060905
  36. LACTEC [Concomitant]
     Indication: DEHYDRATION
     Route: 041
     Dates: start: 20060905, end: 20060905
  37. VEEN F [Concomitant]
     Indication: DEHYDRATION
     Route: 041
     Dates: start: 20060905, end: 20060906
  38. MIRACLID [Concomitant]
     Indication: SHOCK
     Route: 041
     Dates: start: 20060905, end: 20060905

REACTIONS (15)
  - ACUTE RESPIRATORY DISTRESS SYNDROME [None]
  - ADRENAL CORTEX NECROSIS [None]
  - HAEMODIALYSIS [None]
  - LARGE INTESTINAL ULCER [None]
  - MULTI-ORGAN FAILURE [None]
  - PANCREATIC NECROSIS [None]
  - PERITONEAL ADHESIONS [None]
  - PNEUMONIA [None]
  - PNEUMONIA ASPIRATION [None]
  - PULMONARY HAEMORRHAGE [None]
  - RHABDOMYOLYSIS [None]
  - SEPTIC SHOCK [None]
  - SKIN ULCER HAEMORRHAGE [None]
  - STAPHYLOCOCCAL INFECTION [None]
  - TOXIC EPIDERMAL NECROLYSIS [None]
